FAERS Safety Report 14856602 (Version 1)
Quarter: 2018Q2

REPORT INFORMATION
  Report Type: Spontaneous
  Country: US (occurrence: US)
  Receive Date: 20180507
  Receipt Date: 20180507
  Transmission Date: 20180711
  Serious: No
  Sender: FDA-Public Use
  Company Number: US-ROCHE-2024947

PATIENT
  Sex: Male

DRUGS (1)
  1. ESBRIET [Suspect]
     Active Substance: PIRFENIDONE
     Indication: IDIOPATHIC PULMONARY FIBROSIS
     Dosage: WITH MEAL, ONGOING
     Route: 048
     Dates: start: 20170925

REACTIONS (3)
  - Insomnia [Unknown]
  - Upper-airway cough syndrome [Unknown]
  - Arthralgia [Unknown]
